FAERS Safety Report 4614271-X (Version None)
Quarter: 2005Q1

REPORT INFORMATION
  Report Type: 
  Country: None (occurrence: None)
  Receive Date: 20050315
  Receipt Date: 20050224
  Transmission Date: 20050727
  Serious: Yes (Other)
  Sender: FDA-Public Use
  Company Number: US97014963A

PATIENT
  Sex: Male
  Weight: 86 kg

DRUGS (7)
  1. HUMULIN L [Suspect]
     Indication: DIABETES MELLITUS
     Dosage: 44 U DAY
     Dates: start: 19940101, end: 19940101
  2. HUMULIN R [Suspect]
     Indication: DIABETES MELLITUS
     Dosage: 6 U DAY
     Dates: start: 19940101, end: 19940101
  3. HUMULIN U [Suspect]
     Indication: DIABETES MELLITUS
  4. HUMULIN 70/30 [Suspect]
     Indication: DIABETES MELLITUS
     Dosage: 45 U/DAY
     Dates: start: 19980501
  5. REGULAR ILETIN II (PORK) [Suspect]
     Indication: DIABETES MELLITUS INSULIN-DEPENDENT
     Dates: start: 20001101
  6. HUMULIN N [Suspect]
     Indication: DIABETES MELLITUS
  7. LENTE ILETIN II (PORK) [Suspect]
     Indication: DIABETES MELLITUS INSULIN-DEPENDENT
     Dates: start: 20001101

REACTIONS (11)
  - DRUG EFFECT DECREASED [None]
  - GLYCOSYLATED HAEMOGLOBIN INCREASED [None]
  - HYPERGLYCAEMIA [None]
  - HYPOGLYCAEMIA [None]
  - LOSS OF CONSCIOUSNESS [None]
  - MEDICATION ERROR [None]
  - PHARMACEUTICAL PRODUCT COMPLAINT [None]
  - ROAD TRAFFIC ACCIDENT [None]
  - SHOCK HYPOGLYCAEMIC [None]
  - THERAPEUTIC RESPONSE INCREASED [None]
  - VISION BLURRED [None]
